FAERS Safety Report 7554586-9 (Version None)
Quarter: 2011Q2

REPORT INFORMATION
  Report Type: 
  Country: None (occurrence: None)
  Receive Date: 20110617
  Receipt Date: 20110607
  Transmission Date: 20111010
  Serious: Yes (Hospitalization)
  Sender: FDA-Public Use
  Company Number: FR-SANOFI-AVENTIS-2011SA036966

PATIENT
  Age: 30 Year
  Sex: Female

DRUGS (9)
  1. VALIUM [Suspect]
     Route: 048
     Dates: start: 20110128
  2. CYAMEMAZINE [Suspect]
     Route: 048
     Dates: start: 20110127, end: 20110130
  3. AUGMENTIN '125' [Suspect]
     Route: 048
     Dates: start: 20110127
  4. MORPHINE SULFATE [Concomitant]
     Route: 065
     Dates: start: 20110126
  5. ACUPAN [Suspect]
     Route: 030
     Dates: start: 20110127
  6. CLONAZEPAM [Concomitant]
     Route: 065
     Dates: start: 20100126
  7. PRIMPERAN TAB [Suspect]
     Route: 048
     Dates: start: 20110127
  8. LOVENOX [Suspect]
     Route: 058
     Dates: start: 20110127
  9. NARCAN [Concomitant]
     Route: 065
     Dates: start: 20110126

REACTIONS (1)
  - SINUS TACHYCARDIA [None]
